FAERS Safety Report 5860098-0 (Version None)
Quarter: 2008Q3

REPORT INFORMATION
  Report Type: 
  Country: None (occurrence: None)
  Receive Date: 20080827
  Receipt Date: 20080815
  Transmission Date: 20090109
  Serious: Yes (Hospitalization, Other)
  Sender: FDA-Public Use
  Company Number: US-ELI_LILLY_AND_COMPANY-US200805002228

PATIENT
  Sex: Female
  Weight: 84 kg

DRUGS (5)
  1. XIGRIS [Suspect]
     Indication: SEPSIS
     Dosage: UNK, UNK
     Route: 042
     Dates: start: 20080430, end: 20080501
  2. FLAGYL [Concomitant]
     Indication: SEPSIS
     Dosage: 500 MG, 3/D
     Route: 042
     Dates: start: 20080429, end: 20080503
  3. ZOSYN [Concomitant]
     Indication: SEPSIS
     Dosage: 4.5 G, 3/D
     Route: 042
     Dates: start: 20080429, end: 20080513
  4. ENOXAPARIN SODIUM [Concomitant]
     Indication: THROMBOSIS PROPHYLAXIS
     Dosage: 40 MG, DAILY (1/D)
     Route: 058
     Dates: start: 20080429, end: 20080429
  5. LEVOPHED [Concomitant]
     Indication: SEPTIC SHOCK
     Dates: start: 20080429, end: 20080430

REACTIONS (3)
  - ANAEMIA [None]
  - INCISION SITE HAEMORRHAGE [None]
  - STOMATITIS NECROTISING [None]
